FAERS Safety Report 9033645 (Version 2)
Quarter: 2014Q1

REPORT INFORMATION
  Report Type: Spontaneous
  Country: US (occurrence: US)
  Receive Date: 20130128
  Receipt Date: 20140219
  Transmission Date: 20141002
  Serious: Yes (Death)
  Sender: FDA-Public Use
  Company Number: US-AMGEN-USASP2012080428

PATIENT
  Age: 68 Year
  Sex: Female

DRUGS (7)
  1. PROLIA [Suspect]
     Indication: PRODUCT USED FOR UNKNOWN INDICATION
     Dosage: UNK
     Route: 065
  2. LASIX                              /00032601/ [Concomitant]
  3. THEOPHYLLINE [Concomitant]
  4. METOPROLOL [Concomitant]
  5. SOMA [Concomitant]
  6. XANAX [Concomitant]
  7. NEUMANTINE [Concomitant]

REACTIONS (1)
  - Death [Fatal]
